FAERS Safety Report 15490731 (Version 2)
Quarter: 2018Q4

REPORT INFORMATION
  Report Type: Spontaneous
  Country: US (occurrence: US)
  Receive Date: 20181011
  Receipt Date: 20181206
  Transmission Date: 20190205
  Serious: Yes (Other)
  Sender: FDA-Public Use
  Company Number: US-HLSUS-2018-US-000949

PATIENT
  Sex: 0

DRUGS (1)
  1. CLOZARIL [Suspect]
     Active Substance: CLOZAPINE

REACTIONS (4)
  - Anaemia [None]
  - Ulcer haemorrhage [Unknown]
  - Blood count abnormal [None]
  - Red blood cell count decreased [None]
